FAERS Safety Report 5702461-4 (Version None)
Quarter: 2008Q2

REPORT INFORMATION
  Report Type: 
  Country: None (occurrence: None)
  Receive Date: 20080410
  Receipt Date: 20080410
  Transmission Date: 20081010
  Serious: No
  Sender: FDA-Public Use
  Company Number: None

PATIENT
  Age: 49 Year
  Sex: Male
  Weight: 81.6475 kg

DRUGS (2)
  1. CYMBALTA [Suspect]
     Indication: ANXIETY
     Dosage: 60 MG ONE DAILY PO
     Route: 048
     Dates: start: 20080201, end: 20080403
  2. CYMBALTA [Suspect]
     Indication: DEPRESSION
     Dosage: 60 MG ONE DAILY PO
     Route: 048
     Dates: start: 20080201, end: 20080403

REACTIONS (10)
  - AGGRESSION [None]
  - CONFUSIONAL STATE [None]
  - DYSPHAGIA [None]
  - FEAR [None]
  - MOOD SWINGS [None]
  - PARANOIA [None]
  - PHARMACEUTICAL PRODUCT COMPLAINT [None]
  - POISONING [None]
  - SUICIDAL IDEATION [None]
  - TREMOR [None]
